FAERS Safety Report 7048641-X (Version None)
Quarter: 2010Q4

REPORT INFORMATION
  Report Type: 
  Country: None (occurrence: None)
  Receive Date: 20101018
  Receipt Date: 20101013
  Transmission Date: 20110411
  Serious: Yes (Death, Life-Threatening, Hospitalization, Other)
  Sender: FDA-Public Use
  Company Number: DE-BAYER-201036633GPV

PATIENT
  Age: 72 Year
  Sex: Male

DRUGS (6)
  1. NEXAVAR [Suspect]
     Indication: METASTATIC RENAL CELL CARCINOMA
     Route: 048
     Dates: start: 20100702, end: 20100820
  2. AGRENOX [Concomitant]
     Dates: end: 20100822
  3. NEXIUM [Concomitant]
     Dates: end: 20100822
  4. CALCIMAGON FORTE [Concomitant]
     Dates: end: 20100822
  5. PREDNISOLON [Concomitant]
     Dates: end: 20100822
  6. LORAZEPAM [Concomitant]
     Dates: end: 20100822

REACTIONS (3)
  - ABDOMINAL PAIN UPPER [None]
  - BRONCHOSPASM [None]
  - PERITONITIS [None]
